FAERS Safety Report 5709523-6 (Version None)
Quarter: 2008Q2

REPORT INFORMATION
  Report Type: 
  Country: None (occurrence: None)
  Receive Date: 20080418
  Receipt Date: 20080415
  Transmission Date: 20081010
  Serious: Yes (Life-Threatening)
  Sender: FDA-Public Use
  Company Number: ES-ASTRAZENECA-2008AC00945

PATIENT
  Age: 82 Year
  Sex: Male

DRUGS (6)
  1. CASODEX [Suspect]
     Route: 048
  2. ALDOCUMAR [Interacting]
     Indication: ATRIAL FIBRILLATION
     Route: 048
     Dates: end: 20080110
  3. MEXILETIN [Concomitant]
     Route: 048
  4. COZAAR [Concomitant]
     Route: 048
  5. SEGURIL [Concomitant]
     Route: 048
  6. ALDACTONE [Concomitant]
     Route: 048

REACTIONS (2)
  - ABDOMINAL WALL HAEMATOMA [None]
  - DRUG INTERACTION [None]
